FAERS Safety Report 17487613 (Version 1)
Quarter: 2020Q1

REPORT INFORMATION
  Report Type: Spontaneous
  Country: US (occurrence: US)
  Receive Date: 20200303
  Receipt Date: 20200303
  Transmission Date: 20200409
  Serious: No
  Sender: FDA-Public Use
  Company Number: US-ALLERGAN-1946520US

PATIENT
  Age: 59 Year
  Sex: Female

DRUGS (9)
  1. OTC GAS PILLS [Concomitant]
     Indication: FLATULENCE
  2. BYSTOLIC [Concomitant]
     Active Substance: NEBIVOLOL HYDROCHLORIDE
     Indication: HYPERTENSION
  3. IRBESARTAN HCTZ [Concomitant]
     Active Substance: HYDROCHLOROTHIAZIDE\IRBESARTAN
     Indication: HYPERTENSION
  4. INSULIN [Concomitant]
     Active Substance: INSULIN NOS
     Indication: DIABETES MELLITUS
  5. SAVELLA [Suspect]
     Active Substance: MILNACIPRAN HYDROCHLORIDE
     Indication: FIBROMYALGIA
     Dosage: 12.5 MG, BID
     Route: 048
     Dates: start: 20191108
  6. GABAPENTIN. [Concomitant]
     Active Substance: GABAPENTIN
  7. OMEGA 3 [Concomitant]
     Active Substance: OMEGA-3 FATTY ACIDS
  8. OTC FIBER [Concomitant]
  9. SINUS ALLERGY MED-OTC [Concomitant]
     Indication: HYPERSENSITIVITY

REACTIONS (2)
  - Insomnia [Recovered/Resolved]
  - Hot flush [Recovered/Resolved]

NARRATIVE: CASE EVENT DATE: 20191108
